FAERS Safety Report 5979541-1 (Version None)
Quarter: 2008Q4

REPORT INFORMATION
  Report Type: 
  Country: None (occurrence: None)
  Receive Date: 20081204
  Receipt Date: 20081203
  Transmission Date: 20090506
  Serious: Yes (Other)
  Sender: FDA-Public Use
  Company Number: US-B.I. PHARMACEUTICALS,INC./RIDGEFIELD-2008-BP-16056BP

PATIENT
  Sex: Female

DRUGS (12)
  1. SPIRIVA [Suspect]
     Indication: CHRONIC OBSTRUCTIVE PULMONARY DISEASE
     Dosage: 18MCG
     Route: 048
     Dates: start: 20070501
  2. SPIRIVA [Suspect]
     Indication: ASTHMA
  3. MUCINEX [Concomitant]
  4. ADVAIR HFA [Concomitant]
  5. HYZAAR [Concomitant]
  6. NEXIUM [Concomitant]
     Dosage: 40MG
  7. FLONASE [Concomitant]
  8. LORATADINE [Concomitant]
     Dosage: 10MG
  9. SINGULAIR [Concomitant]
     Dosage: 10MG
  10. ALBUTEROL [Concomitant]
  11. ACTONEL [Concomitant]
     Indication: BONE DISORDER
  12. VITAMINS [Concomitant]

REACTIONS (3)
  - CHRONIC LYMPHOCYTIC LEUKAEMIA [None]
  - FEELING ABNORMAL [None]
  - HEADACHE [None]
